FAERS Safety Report 7649153-2 (Version None)
Quarter: 2011Q3

REPORT INFORMATION
  Report Type: 
  Country: None (occurrence: None)
  Receive Date: 20110802
  Receipt Date: 20110727
  Transmission Date: 20111222
  Serious: Yes (Hospitalization, Other)
  Sender: FDA-Public Use
  Company Number: US-JNJFOC-20110504096

PATIENT
  Sex: Male
  Weight: 69.9 kg

DRUGS (9)
  1. ASPIRIN [Concomitant]
     Indication: TRANSIENT ISCHAEMIC ATTACK
     Route: 065
  2. ZOLOFT [Concomitant]
     Indication: DEPRESSION
     Route: 048
     Dates: start: 20021016
  3. ABIRATERONE ACETATE [Suspect]
     Route: 048
     Dates: start: 20110311, end: 20110505
  4. MULTI-VITAMINS [Concomitant]
     Indication: VITAMIN SUPPLEMENTATION
     Route: 065
     Dates: start: 20030319
  5. CALCIUM AND VITAMIN D [Concomitant]
     Indication: MEDICAL DIET
     Route: 048
     Dates: start: 20030319
  6. ABIRATERONE ACETATE [Suspect]
     Indication: PROSTATE CANCER METASTATIC
     Route: 048
     Dates: start: 20110516
  7. PREDNISONE [Suspect]
     Indication: PROSTATE CANCER METASTATIC
     Route: 065
     Dates: start: 20110505
  8. PREDNISONE [Suspect]
     Route: 065
     Dates: start: 20110311, end: 20110505
  9. ZOMETA [Concomitant]
     Indication: PROPHYLAXIS
     Route: 065
     Dates: start: 20031117

REACTIONS (1)
  - DEHYDRATION [None]
